FAERS Safety Report 9984662 (Version 1)
Quarter: 2014Q1

REPORT INFORMATION
  Report Type: Spontaneous
  Country: US (occurrence: US)
  Receive Date: 20140307
  Receipt Date: 20140307
  Transmission Date: 20141002
  Serious: No
  Sender: FDA-Public Use
  Company Number: US-GLAXOSMITHKLINE-A1057497A

PATIENT
  Age: 70 Year
  Sex: Male

DRUGS (2)
  1. BREO ELLIPTA [Suspect]
     Indication: CHRONIC OBSTRUCTIVE PULMONARY DISEASE
     Dosage: 1PUFF PER DAY
     Route: 055
     Dates: start: 201401, end: 201401
  2. NO CONCURRENT MEDICATION [Concomitant]

REACTIONS (2)
  - Throat irritation [Recovered/Resolved]
  - Cough [Recovered/Resolved]
